FAERS Safety Report 24048183 (Version 1)
Quarter: 2024Q3

REPORT INFORMATION
  Report Type: Spontaneous
  Country: CN (occurrence: CN)
  Receive Date: 20240703
  Receipt Date: 20240703
  Transmission Date: 20241016
  Serious: Yes (Other)
  Sender: ELI LILLY AND CO
  Company Number: CN-ELI_LILLY_AND_COMPANY-CN202406015891

PATIENT
  Age: 60 Year
  Sex: Male

DRUGS (1)
  1. GEMCITABINE HYDROCHLORIDE [Suspect]
     Active Substance: GEMCITABINE HYDROCHLORIDE
     Indication: Pancreatic carcinoma
     Dosage: UNK UNK, WEEKLY (1/W)
     Route: 041
     Dates: start: 20240530

REACTIONS (17)
  - Thrombosis [Recovering/Resolving]
  - Lymphocyte count decreased [Recovering/Resolving]
  - Neutrophil count increased [Recovering/Resolving]
  - Mononuclear cell count increased [Recovering/Resolving]
  - Fibrin D dimer increased [Recovering/Resolving]
  - Transferrin decreased [Recovering/Resolving]
  - Blood albumin decreased [Recovering/Resolving]
  - Immature granulocyte count increased [Recovering/Resolving]
  - Monocyte count increased [Recovering/Resolving]
  - Gastrointestinal disorder [Recovering/Resolving]
  - Protein total decreased [Recovering/Resolving]
  - White blood cell count decreased [Recovering/Resolving]
  - Platelet count decreased [Recovering/Resolving]
  - Haematocrit decreased [Recovering/Resolving]
  - Haemoglobin decreased [Recovering/Resolving]
  - Alanine aminotransferase increased [Recovering/Resolving]
  - Arrhythmia [Recovering/Resolving]

NARRATIVE: CASE EVENT DATE: 20240605
